FAERS Safety Report 5127446-0 (Version None)
Quarter: 2006Q4

REPORT INFORMATION
  Report Type: 
  Country: None (occurrence: None)
  Receive Date: 20061013
  Receipt Date: 20061013
  Transmission Date: 20070319
  Serious: No
  Sender: FDA-Public Use
  Company Number: None

PATIENT
  Age: 40 Year
  Sex: Female

DRUGS (1)
  1. ZOFRAN [Suspect]
     Indication: POST PROCEDURAL NAUSEA
     Dosage: INTRAVENOUS 4.0
     Route: 042
     Dates: start: 20060814, end: 20060814

REACTIONS (3)
  - ERYTHEMA [None]
  - INFUSION RELATED REACTION [None]
  - URTICARIA [None]
